FAERS Safety Report 8809835 (Version 1)
Quarter: 2012Q4

REPORT INFORMATION
  Report Type: 
  Country: CN (occurrence: CN)
  Receive Date: 20120926
  Receipt Date: 20120926
  Transmission Date: 20130627
  Serious: Yes (Hospitalization)
  Sender: FDA-Public Use
  Company Number: CN-ABBOTT-12P-035-0981182-00

PATIENT
  Age: 73 None
  Sex: Male
  Weight: 44 kg

DRUGS (1)
  1. TERAZOSIN [Suspect]
     Indication: DYSURIA
     Route: 048
     Dates: start: 20090221, end: 20090221

REACTIONS (4)
  - Generalised oedema [Recovering/Resolving]
  - Asthenia [Recovering/Resolving]
  - Grip strength decreased [Recovering/Resolving]
  - Fatigue [Recovering/Resolving]
